FAERS Safety Report 8437374-0 (Version None)
Quarter: 2012Q2

REPORT INFORMATION
  Report Type: 
  Country: None (occurrence: None)
  Receive Date: 20120614
  Receipt Date: 20120314
  Transmission Date: 20120825
  Serious: No
  Sender: FDA-Public Use
  Company Number: US-AMGEN-USASP2012016664

PATIENT
  Age: 54 Year
  Sex: Female

DRUGS (3)
  1. PROLIA [Suspect]
     Indication: OSTEOPOROSIS POSTMENOPAUSAL
     Dosage: 60 MG, QMO
     Dates: start: 20110101
  2. CALCIUM [Concomitant]
  3. METHOTREXATE [Concomitant]

REACTIONS (3)
  - VERTIGO [None]
  - MYALGIA [None]
  - UPPER RESPIRATORY TRACT INFECTION [None]
